FAERS Safety Report 6934922-4 (Version None)
Quarter: 2010Q3

REPORT INFORMATION
  Report Type: 
  Country: None (occurrence: None)
  Receive Date: 20100821
  Receipt Date: 20100810
  Transmission Date: 20110219
  Serious: Yes (Life-Threatening)
  Sender: FDA-Public Use
  Company Number: GXKR2010US08960

PATIENT
  Sex: Male
  Weight: 2 kg

DRUGS (2)
  1. METHADONE (NGX) [Suspect]
     Dosage: 0.05 MG/KG, Q6H
     Route: 048
  2. METHADONE (NGX) [Suspect]
     Dosage: 0.5 MG/KG, Q6H
     Route: 048

REACTIONS (9)
  - ACCIDENTAL OVERDOSE [None]
  - APNOEA [None]
  - CHEST DISCOMFORT [None]
  - LARYNGEAL STENOSIS [None]
  - LOSS OF CONSCIOUSNESS [None]
  - MECHANICAL VENTILATION [None]
  - MEDICATION ERROR [None]
  - STRIDOR [None]
  - USE OF ACCESSORY RESPIRATORY MUSCLES [None]
